FAERS Safety Report 5065348-9 (Version None)
Quarter: 2006Q3

REPORT INFORMATION
  Report Type: 
  Country: None (occurrence: None)
  Receive Date: 20060726
  Receipt Date: 20060718
  Transmission Date: 20061208
  Serious: Yes (Life-Threatening, Hospitalization)
  Sender: FDA-Public Use
  Company Number: 227552

PATIENT
  Age: 68 Year
  Sex: Male
  Weight: 116.1 kg

DRUGS (12)
  1. AVASTIN [Suspect]
     Indication: RENAL CELL CARCINOMA STAGE UNSPECIFIED
     Dosage: 10 MG/KG, DAYS 1 + 15, INTRAVENOUS
     Route: 042
     Dates: start: 20040909, end: 20060629
  2. ERLOTINIB(ERLOTINIB) TABLET, 100MG [Suspect]
     Indication: RENAL CELL CARCINOMA STAGE UNSPECIFIED
     Dosage: 100 MG, QD, ORAL
     Route: 048
     Dates: start: 20040909, end: 20060703
  3. ASPIRIN [Concomitant]
  4. METAMUCIL (PSYLLIUM HUSK) [Concomitant]
  5. HUMULIN 70/30 (INSULIN HUMAN, NPH HUMAN INSULIN ISOPHANE SUSPENSION) [Concomitant]
  6. HUMULIN R [Concomitant]
  7. ZOCOR [Concomitant]
  8. ENOXAPARIN SODIUM [Concomitant]
  9. LEVAQUIN [Concomitant]
  10. ALLOPURINOL [Concomitant]
  11. ZELNORM [Concomitant]
  12. RYTHMOL [Concomitant]

REACTIONS (10)
  - ABDOMINAL PAIN [None]
  - BLOOD BILIRUBIN INCREASED [None]
  - DIVERTICULUM [None]
  - HYPOTENSION [None]
  - HYPOVOLAEMIA [None]
  - KIDNEY INFECTION [None]
  - PLEURAL EFFUSION [None]
  - PYELONEPHRITIS [None]
  - RENAL DISORDER [None]
  - RENAL FAILURE ACUTE [None]
